FAERS Safety Report 6320749-3 (Version None)
Quarter: 2009Q3

REPORT INFORMATION
  Report Type: 
  Country: None (occurrence: None)
  Receive Date: 20090822
  Receipt Date: 20081205
  Transmission Date: 20100115
  Serious: No
  Sender: FDA-Public Use
  Company Number: US-ABBOTT-08P-163-0491669-00

PATIENT
  Sex: Male
  Weight: 96.248 kg

DRUGS (4)
  1. NIASPAN [Suspect]
     Indication: BLOOD CHOLESTEROL INCREASED
     Dates: start: 20080918
  2. ASPIRIN [Concomitant]
     Indication: PROPHYLAXIS
     Dosage: 325MG DAILY; 1/2 HR BEFORE NIACIN
     Dates: start: 20080918
  3. ASPIRIN [Concomitant]
     Indication: ADVERSE DRUG REACTION
  4. AVAPRO [Concomitant]
     Indication: BLOOD CHOLESTEROL
     Dosage: 300 MG DAILY
     Dates: start: 20080918

REACTIONS (14)
  - DIZZINESS [None]
  - ERYTHEMA [None]
  - FAECAL INCONTINENCE [None]
  - FALL [None]
  - FEELING ABNORMAL [None]
  - FEELING COLD [None]
  - FEELING HOT [None]
  - FLATULENCE [None]
  - FLUSHING [None]
  - HEAD DISCOMFORT [None]
  - HOT FLUSH [None]
  - PAIN [None]
  - PARAESTHESIA [None]
  - SKIN BURNING SENSATION [None]
